FAERS Safety Report 8068085 (Version 4)
Quarter: 2013Q2

REPORT INFORMATION
  Report Type: Spontaneous
  Country: US (occurrence: US)
  Receive Date: 20110804
  Receipt Date: 20130610
  Transmission Date: 20140414
  Serious: Yes (Hospitalization)
  Sender: FDA-Public Use
  Company Number: US-BIOGENIDEC-2011BI028215

PATIENT
  Age: 69 Year
  Sex: Female

DRUGS (4)
  1. AVONEX [Suspect]
     Indication: MULTIPLE SCLEROSIS
     Route: 030
     Dates: start: 19970801, end: 200308
  2. AVONEX [Suspect]
     Indication: MULTIPLE SCLEROSIS
     Route: 030
     Dates: start: 200308, end: 20040715
  3. AVONEX [Suspect]
     Indication: MULTIPLE SCLEROSIS
     Route: 030
     Dates: start: 20050314, end: 20100803
  4. AVONEX [Suspect]
     Indication: MULTIPLE SCLEROSIS
     Route: 030
     Dates: start: 20110519

REACTIONS (6)
  - Bone neoplasm [Not Recovered/Not Resolved]
  - Calcinosis [Recovered/Resolved with Sequelae]
  - Post procedural complication [Not Recovered/Not Resolved]
  - Dysarthria [Recovered/Resolved]
  - Multiple sclerosis relapse [Recovered/Resolved]
  - Arthritis [Not Recovered/Not Resolved]
